FAERS Safety Report 9176434 (Version 2)
Quarter: 2013Q2

REPORT INFORMATION
  Report Type: Spontaneous
  Country: US (occurrence: None)
  Receive Date: 20120531
  Receipt Date: 20121130
  Transmission Date: 20140414
  Serious: Yes (Hospitalization, Other)
  Sender: FDA-Public Use
  Company Number: US201201007007

PATIENT
  Sex: Female
  Weight: 82.5 kg

DRUGS (17)
  1. BYETTA [Suspect]
     Indication: DIABETES MELLITUS
     Route: 058
     Dates: start: 2005, end: 200804
  2. LANTUS (INSULIN GLARGINE) [Concomitant]
  3. HUMALOG (INSULIN LISPRO) [Concomitant]
  4. AVANDIA (ROSIGLITAZONE MALEATE) [Concomitant]
  5. DILAUDID (HYDROMORPHONE HYDROCHLORIDE) [Concomitant]
  6. DEMEROL (PETHIDINE HYDROCHLORIDE) [Concomitant]
  7. PROCTOCREAM-HC (HYDROCORTISONE ACETATE, PRAMOCAINE HYDROCHLORIDE) [Concomitant]
  8. ULTRAM (TRAMADOL HYDROCHLORIDE) [Concomitant]
  9. ASACOL (MESALAZINE) MODIFIED-RELEASE TABLET, 400 MG [Concomitant]
  10. FOLIC ACID (FOLIC ACID) [Concomitant]
  11. NEURONTIN (GABAPENTIN) [Concomitant]
  12. NEXIUM (ESOMEPRAZOLE MAGNESIUM) [Concomitant]
  13. SYNTHROID (LEVOTHYROXINE SODIUM) [Concomitant]
  14. ZOVIRAX /GRC/ (ACICLOVIR) [Concomitant]
  15. COUMADIN (WARFARIN SODIUM) [Concomitant]
  16. HYDROXYZINE HCL (HYDROXYZINE HYDROCHLORIDE) [Concomitant]
  17. APIDRA (INSULIN GLULISINE) [Concomitant]

REACTIONS (2)
  - Pancreatitis [None]
  - Off label use [None]
